FAERS Safety Report 4952004-8 (Version None)
Quarter: 2006Q1

REPORT INFORMATION
  Report Type: 
  Country: None (occurrence: None)
  Receive Date: 20060322
  Receipt Date: 20060322
  Transmission Date: 20060701
  Serious: Yes (Other)
  Sender: FDA-Public Use
  Company Number: None

PATIENT
  Sex: Female
  Weight: 61.2356 kg

DRUGS (2)
  1. AVONEX [Suspect]
     Indication: MULTIPLE SCLEROSIS
     Dosage: 30 MCG   1X/WK
     Dates: start: 20060220
  2. AVONEX [Suspect]
     Indication: MULTIPLE SCLEROSIS
     Dosage: 30 MCG   1X/WK
     Dates: start: 20060227

REACTIONS (5)
  - CHILLS [None]
  - DRUG INTERACTION [None]
  - MYALGIA [None]
  - PAIN [None]
  - TREMOR [None]
